FAERS Safety Report 7117652-8 (Version None)
Quarter: 2010Q4

REPORT INFORMATION
  Report Type: 
  Country: None (occurrence: None)
  Receive Date: 20101123
  Receipt Date: 20101117
  Transmission Date: 20110411
  Serious: Yes (Hospitalization)
  Sender: FDA-Public Use
  Company Number: CH-SP-2010-06507

PATIENT
  Sex: Male

DRUGS (1)
  1. IMMUCYST [Suspect]
     Indication: BLADDER CANCER RECURRENT
     Dosage: NOT REPORTED
     Route: 043

REACTIONS (2)
  - ORCHITIS [None]
  - TESTICULAR ABSCESS [None]
